FAERS Safety Report 4839362-X (Version None)
Quarter: 2005Q4

REPORT INFORMATION
  Report Type: 
  Country: None (occurrence: None)
  Receive Date: 20051129
  Receipt Date: 20050203
  Transmission Date: 20060501
  Serious: Yes (Other)
  Sender: FDA-Public Use
  Company Number: 2005/00418

PATIENT
  Age: 46 Year
  Sex: Female
  Weight: 56.8 kg

DRUGS (1)
  1. BUPROPION HCL [Suspect]
     Dosage: 150MG TWICE PER DAY
     Route: 048
     Dates: start: 20041105

REACTIONS (1)
  - HALLUCINATION [None]
